FAERS Safety Report 6176869-X (Version None)
Quarter: 2009Q2

REPORT INFORMATION
  Report Type: 
  Country: None (occurrence: None)
  Receive Date: 20090501
  Receipt Date: 20081121
  Transmission Date: 20091009
  Serious: Yes (Hospitalization)
  Sender: FDA-Public Use
  Company Number: US-ALEXION-A200800336

PATIENT

DRUGS (15)
  1. SOLIRIS [Suspect]
     Indication: PAROXYSMAL NOCTURNAL HAEMOGLOBINURIA
     Dosage: 600 MG, UNK
     Route: 042
     Dates: start: 20071004
  2. SOLIRIS [Suspect]
     Route: 042
     Dates: end: 20080401
  3. SOLIRIS [Suspect]
     Dosage: UNK, UNK
     Route: 042
     Dates: start: 20080501, end: 20080601
  4. SOLIRIS [Suspect]
     Dosage: UNK, Q2WKS
     Route: 042
     Dates: start: 20080925
  5. GLIMEPIRIDE [Concomitant]
     Dosage: UNK, QD
     Route: 048
  6. EXJADE [Concomitant]
     Dosage: UNK, QD
     Route: 048
  7. VITAMIN C                          /00008001/ [Concomitant]
     Dosage: UNK, QD
     Route: 048
  8. CALCIUM D                          /01272001/ [Concomitant]
     Dosage: UNK, QD
     Route: 048
  9. NORVASC [Concomitant]
     Dosage: UNK, QD
     Route: 048
  10. LISINOPRIL [Concomitant]
     Dosage: UNK, QD
     Route: 048
  11. MULTIVITAMIN                       /00831701/ [Concomitant]
     Dosage: UNK, QD
     Route: 048
  12. PREDNISON [Concomitant]
     Dosage: 2.5 UNK, QD
     Route: 048
  13. ATENOLOL [Concomitant]
     Dosage: UNK, QD
     Route: 048
  14. ARANESP [Concomitant]
     Dosage: 300 UNK, QOW
  15. SIMVASTATIN [Concomitant]

REACTIONS (2)
  - HIP FRACTURE [None]
  - PNEUMONIA [None]
